FAERS Safety Report 25828991 (Version 1)
Quarter: 2025Q3

REPORT INFORMATION
  Report Type: Report from Study
  Country: US (occurrence: US)
  Receive Date: 20250922
  Receipt Date: 20250922
  Transmission Date: 20251020
  Serious: Yes (Other)
  Sender: ALEXION PHARMACEUTICALS
  Company Number: US-AstraZeneca-CH-00952093A

PATIENT
  Sex: Male
  Weight: 90.703 kg

DRUGS (2)
  1. OLAPARIB [Suspect]
     Active Substance: OLAPARIB
     Indication: Prostate cancer
     Dosage: 1 TABLET IN THE MORNING AND 2 TABLETS AT NIGHT
  2. ERLEADA [Concomitant]
     Active Substance: APALUTAMIDE
     Route: 065

REACTIONS (4)
  - Lymphadenopathy [Not Recovered/Not Resolved]
  - Drug ineffective [Not Recovered/Not Resolved]
  - Prostatic specific antigen increased [Not Recovered/Not Resolved]
  - Neuropathy peripheral [Not Recovered/Not Resolved]
